FAERS Safety Report 5752579-5 (Version None)
Quarter: 2008Q2

REPORT INFORMATION
  Report Type: 
  Country: None (occurrence: None)
  Receive Date: 20080529
  Receipt Date: 20080523
  Transmission Date: 20081010
  Serious: Yes (Other)
  Sender: FDA-Public Use
  Company Number: PHHY2008AU08533

PATIENT
  Sex: Female

DRUGS (1)
  1. EXJADE [Suspect]
     Indication: LEUKAEMIA
     Dosage: 3 TABLET/DAY
     Route: 048

REACTIONS (2)
  - DYSPNOEA [None]
  - TACHYCARDIA [None]
